FAERS Safety Report 9254852 (Version 1)
Quarter: 2013Q1

REPORT INFORMATION
  Report Type: Spontaneous
  Country: US (occurrence: None)
  Receive Date: 20121212
  Receipt Date: 20121212
  Transmission Date: 20140127
  Serious: No
  Sender: FDA-Public Use
  Company Number: 1209USA012014

PATIENT
  Age: 69 Year
  Sex: Male

DRUGS (3)
  1. PEGINTRON [Suspect]
     Indication: HEPATITIS C
     Dosage: REDIPEN
     Dates: start: 20120908, end: 20120922
  2. REBETOL [Suspect]
     Indication: HEPATITIS C
     Dates: start: 20120908
  3. VICTRELIS [Suspect]
     Indication: HEPATITIS C
     Dates: start: 20121012

REACTIONS (14)
  - Hyperhidrosis [None]
  - Influenza [None]
  - Skin odour abnormal [None]
  - Dysgeusia [None]
  - Increased upper airway secretion [None]
  - Pyrexia [None]
  - White blood cell count decreased [None]
  - Injection site discolouration [None]
  - Rash [None]
  - Eye pain [None]
  - Vision blurred [None]
  - Fatigue [None]
  - Asthenia [None]
  - Dizziness [None]
